FAERS Safety Report 16509238 (Version 1)
Quarter: 2019Q3

REPORT INFORMATION
  Report Type: Spontaneous
  Country: US (occurrence: US)
  Receive Date: 20190701
  Receipt Date: 20190701
  Transmission Date: 20191004
  Serious: Yes (Disabling)
  Sender: FDA-Public Use
  Company Number: None

PATIENT
  Age: 35 Year
  Sex: Female
  Weight: 69.3 kg

DRUGS (1)
  1. MESALAMINE DR. 1.2 GM TABLET [Suspect]
     Active Substance: MESALAMINE
     Indication: CROHN^S DISEASE
     Dosage: ?          QUANTITY:2 TABLET(S);?
     Route: 048
     Dates: start: 20190614, end: 20190624

REACTIONS (2)
  - Pain in extremity [None]
  - Joint stiffness [None]

NARRATIVE: CASE EVENT DATE: 20190616
